FAERS Safety Report 20421957 (Version 1)
Quarter: 2022Q1

REPORT INFORMATION
  Report Type: Spontaneous
  Country: US (occurrence: None)
  Receive Date: 20220203
  Receipt Date: 20220203
  Transmission Date: 20220423
  Serious: Yes (Life-Threatening, Hospitalization, Disabling)
  Sender: FDA-Public Use
  Company Number: None

PATIENT
  Age: 48 Year
  Sex: Female

DRUGS (1)
  1. DOXYCYCLINE [Suspect]
     Active Substance: DOXYCYCLINE
     Indication: Staphylococcal infection
     Dosage: FREQUENCY : TWICE A DAY;?
     Route: 048
     Dates: start: 20201017, end: 20201029

REACTIONS (5)
  - Anaphylactic shock [None]
  - Swelling face [None]
  - Swollen tongue [None]
  - Vomiting [None]
  - Paraesthesia oral [None]

NARRATIVE: CASE EVENT DATE: 20201029
